FAERS Safety Report 6337604-5 (Version None)
Quarter: 2009Q3

REPORT INFORMATION
  Report Type: 
  Country: None (occurrence: None)
  Receive Date: 20090902
  Receipt Date: 20090824
  Transmission Date: 20100115
  Serious: Yes (Other)
  Sender: FDA-Public Use
  Company Number: US-BAYER-200930905NA

PATIENT
  Age: 22 Year
  Sex: Female

DRUGS (1)
  1. MIRENA [Suspect]
     Indication: CONTRACEPTION
     Dosage: CONTINUOUS
     Route: 015
     Dates: start: 20080301

REACTIONS (9)
  - ABDOMINAL PAIN [None]
  - ABDOMINAL PAIN LOWER [None]
  - AMENORRHOEA [None]
  - IUCD COMPLICATION [None]
  - IUD MIGRATION [None]
  - NAUSEA [None]
  - POLYCYSTIC OVARIES [None]
  - PROCEDURAL PAIN [None]
  - VAGINAL HAEMORRHAGE [None]
